FAERS Safety Report 25089007 (Version 2)
Quarter: 2025Q1

REPORT INFORMATION
  Report Type: Spontaneous
  Country: US (occurrence: US)
  Receive Date: 20250318
  Receipt Date: 20250320
  Transmission Date: 20250409
  Serious: Yes (Hospitalization, Other)
  Sender: PFIZER
  Company Number: US-PFIZER INC-PV202500030148

PATIENT
  Age: 33 Year
  Sex: Female
  Weight: 39.1 kg

DRUGS (41)
  1. DOXORUBICIN HYDROCHLORIDE [Suspect]
     Active Substance: DOXORUBICIN HYDROCHLORIDE
  2. BLEOMYCIN SULFATE [Suspect]
     Active Substance: BLEOMYCIN SULFATE
  3. DACARBAZINE [Suspect]
     Active Substance: DACARBAZINE
  4. JAKAFI [Suspect]
     Active Substance: RUXOLITINIB
     Dosage: 10 MG, 2X/DAY
     Route: 048
  5. JAKAFI [Suspect]
     Active Substance: RUXOLITINIB
     Dosage: 5 MG, 2X/DAY
     Route: 048
  6. VINBLASTINE SULFATE [Suspect]
     Active Substance: VINBLASTINE SULFATE
  7. AXATILIMAB [Suspect]
     Active Substance: AXATILIMAB
     Indication: Graft versus host disease
     Route: 042
     Dates: start: 20241223, end: 20250127
  8. AXATILIMAB [Suspect]
     Active Substance: AXATILIMAB
     Route: 042
     Dates: start: 20241223, end: 20250127
  9. AXATILIMAB [Suspect]
     Active Substance: AXATILIMAB
     Route: 042
     Dates: start: 20241223, end: 20250210
  10. AXATILIMAB [Suspect]
     Active Substance: AXATILIMAB
     Route: 042
     Dates: start: 20241223, end: 20241223
  11. AXATILIMAB [Suspect]
     Active Substance: AXATILIMAB
     Route: 042
     Dates: start: 20241223, end: 20250127
  12. ZOVIRAX [Concomitant]
     Active Substance: ACYCLOVIR
  13. ACETAMINOPHEN [Concomitant]
     Active Substance: ACETAMINOPHEN
  14. ACTIGALL [Concomitant]
     Active Substance: URSODIOL
  15. AQUAPHOR [Concomitant]
     Active Substance: PETROLATUM
  16. ATIVAN [Concomitant]
     Active Substance: LORAZEPAM
  17. BACTRIM DS [Concomitant]
     Active Substance: SULFAMETHOXAZOLE\TRIMETHOPRIM
  18. BECLOMETHASONE DIPROPIONATE [Concomitant]
     Active Substance: BECLOMETHASONE DIPROPIONATE
  19. BENZONATATE [Concomitant]
     Active Substance: BENZONATATE
  20. CETYLPYRIDINIUM CHLORIDE [Concomitant]
     Active Substance: CETYLPYRIDINIUM CHLORIDE
  21. BUDESONIDE [Concomitant]
     Active Substance: BUDESONIDE
  22. CRESEMBA [Concomitant]
     Active Substance: ISAVUCONAZONIUM SULFATE
  23. DELTASONE [Concomitant]
     Active Substance: PREDNISONE
  24. DEXTROMETHORPHAN HYDROBROMIDE AND GUAIFENESIN [Concomitant]
     Active Substance: DEXTROMETHORPHAN HYDROBROMIDE\GUAIFENESIN
  25. DRISDOL [Concomitant]
     Active Substance: ERGOCALCIFEROL
  26. IMODIUM [Concomitant]
     Active Substance: LOPERAMIDE HYDROCHLORIDE
  27. ISAVUCONAZONIUM SULFATE [Concomitant]
     Active Substance: ISAVUCONAZONIUM SULFATE
  28. KLOR-CON M10 [Concomitant]
     Active Substance: POTASSIUM CHLORIDE
  29. MARINOL [Concomitant]
     Active Substance: DRONABINOL
  30. MG PLUS PROTEIN [Concomitant]
  31. NARCAN [Concomitant]
     Active Substance: NALOXONE HYDROCHLORIDE
  32. OPIUM TINCTURE [Concomitant]
     Active Substance: MORPHINE
  33. PREVYMIS [Concomitant]
     Active Substance: LETERMOVIR
  34. PROGRAF [Concomitant]
     Active Substance: TACROLIMUS
  35. PROMACTA [Concomitant]
     Active Substance: ELTROMBOPAG OLAMINE
  36. PROTONIX [Concomitant]
     Active Substance: PANTOPRAZOLE SODIUM
  37. REFRESH TEARS [Concomitant]
     Active Substance: CARBOXYMETHYLCELLULOSE SODIUM
  38. REMERON [Concomitant]
     Active Substance: MIRTAZAPINE
  39. VALCYTE [Concomitant]
     Active Substance: VALGANCICLOVIR HYDROCHLORIDE
  40. ZYPREXA [Concomitant]
     Active Substance: OLANZAPINE
  41. LOMOTIL [Concomitant]
     Active Substance: ATROPINE SULFATE\DIPHENOXYLATE HYDROCHLORIDE

REACTIONS (26)
  - Abdominal pain [Recovered/Resolved]
  - Palpitations [Not Recovered/Not Resolved]
  - Pneumonia bacterial [Unknown]
  - Enterobacter bacteraemia [Recovered/Resolved]
  - Sepsis [Recovered/Resolved]
  - Influenza [Not Recovered/Not Resolved]
  - Tachycardia [Unknown]
  - Hodgkin^s disease nodular sclerosis refractory [Recovering/Resolving]
  - Chronic graft versus host disease [Unknown]
  - Graft versus host disease in liver [Recovered/Resolved]
  - Immunodeficiency [Unknown]
  - Renal atrophy [Unknown]
  - Pneumonitis [Recovered/Resolved]
  - Major depression [Unknown]
  - Immunosuppression [Unknown]
  - Herpes simplex viraemia [Unknown]
  - Thrombocytopenia [Unknown]
  - Pyrexia [Unknown]
  - Muscle disorder [Unknown]
  - Generalised anxiety disorder [Unknown]
  - Malnutrition [Unknown]
  - Rash [Unknown]
  - Respiratory tract infection viral [Unknown]
  - Viral upper respiratory tract infection [Unknown]
  - Cough [Recovering/Resolving]
  - Anaemia [Unknown]

NARRATIVE: CASE EVENT DATE: 20250105
